FAERS Safety Report 11632919 (Version 3)
Quarter: 2016Q1

REPORT INFORMATION
  Report Type: Report from Study
  Country: BR (occurrence: BR)
  Receive Date: 20151015
  Receipt Date: 20160223
  Transmission Date: 20160525
  Serious: Yes (Hospitalization, Other)
  Sender: FDA-Public Use
  Company Number: PHHY2015BR124091

PATIENT
  Sex: Female
  Weight: 65 kg

DRUGS (1)
  1. TASIGNA [Suspect]
     Active Substance: NILOTINIB
     Indication: CHRONIC MYELOID LEUKAEMIA
     Dosage: 2 DF, BID (2 TABLETS IN THE MORNING AND 2 AT NIGHT)
     Route: 048

REACTIONS (9)
  - Gait disturbance [Unknown]
  - Angina pectoris [Unknown]
  - Fear of death [Unknown]
  - Pain [Unknown]
  - Hypertension [Unknown]
  - Diabetes mellitus [Unknown]
  - Malaise [Unknown]
  - Infarction [Unknown]
  - Mental disorder [Unknown]
